FAERS Safety Report 6611061-3 (Version None)
Quarter: 2010Q1

REPORT INFORMATION
  Report Type: 
  Country: None (occurrence: None)
  Receive Date: 20100303
  Receipt Date: 20100301
  Transmission Date: 20100710
  Serious: No
  Sender: FDA-Public Use
  Company Number: US-ASTRAZENECA-2010SE03912

PATIENT
  Age: 32 Year
  Sex: Male
  Weight: 118.8 kg

DRUGS (12)
  1. SEROQUEL [Suspect]
     Indication: SCHIZOPHRENIA, PARANOID TYPE
     Route: 048
     Dates: start: 19991123, end: 20010101
  2. SEROQUEL [Suspect]
     Route: 048
     Dates: start: 20010101
  3. CLOZARIL [Concomitant]
     Dates: start: 19960401, end: 19961101
  4. GEODON [Concomitant]
     Dates: start: 20020101, end: 20060101
  5. HALDOL [Concomitant]
     Dates: start: 19890101
  6. NAVANE [Concomitant]
     Dates: start: 19890401, end: 19890501
  7. STELAZINE [Concomitant]
     Dates: start: 19960101
  8. THORAZINE [Concomitant]
     Dates: start: 19890601, end: 19891101
  9. ZYPREXA [Concomitant]
     Dates: start: 19961101, end: 19991101
  10. TRAZODONE HCL [Concomitant]
  11. VISTARIL [Concomitant]
  12. ASENDIN [Concomitant]

REACTIONS (2)
  - BLOOD TRIGLYCERIDES INCREASED [None]
  - TYPE 2 DIABETES MELLITUS [None]
